FAERS Safety Report 9549455 (Version 2)
Quarter: 2013Q4

REPORT INFORMATION
  Report Type: Spontaneous
  Country: DE (occurrence: None)
  Receive Date: 20130919
  Receipt Date: 20131029
  Transmission Date: 20140711
  Serious: Yes (Hospitalization)
  Sender: FDA-Public Use
  Company Number: ACO_38496_2013

PATIENT
  Age: 46 Year
  Sex: Male

DRUGS (2)
  1. FAMPYRA [Suspect]
     Indication: PRODUCT USED FOR UNKNOWN INDICATION
     Route: 048
     Dates: start: 20100621, end: 20130802
  2. TYSABRI (NATALIZUMAB [Concomitant]

REACTIONS (1)
  - Grand mal convulsion [None]
